FAERS Safety Report 15621924 (Version 1)
Quarter: 2018Q4

REPORT INFORMATION
  Report Type: Spontaneous
  Country: PT (occurrence: FR)
  Receive Date: 20181115
  Receipt Date: 20181115
  Transmission Date: 20190205
  Serious: Yes (Hospitalization, Other)
  Sender: FDA-Public Use
  Company Number: PT-SUNOVION-2018SUN004472

PATIENT

DRUGS (7)
  1. ATORVASTATINE [Concomitant]
     Active Substance: ATORVASTATIN
     Dosage: 10 MG, QD
     Route: 048
  2. ATENOLOL. [Concomitant]
     Active Substance: ATENOLOL
     Dosage: 100 MG, QD
     Route: 048
  3. LOVENOX [Concomitant]
     Active Substance: ENOXAPARIN SODIUM
     Dosage: 1 DF, QD
     Route: 058
  4. CORTANCYL [Concomitant]
     Active Substance: PREDNISONE
     Dosage: 80 MG, QD
     Route: 048
     Dates: start: 20180323, end: 201806
  5. ZEBINIX [Suspect]
     Active Substance: ESLICARBAZEPINE ACETATE
     Indication: MENINGIOMA
     Dosage: 1 DF, QD
     Route: 048
     Dates: start: 20180430, end: 20180511
  6. BIPRETERAX [Suspect]
     Active Substance: INDAPAMIDE\PERINDOPRIL
     Indication: HYPERTENSION
     Dosage: 1 DF, QD
     Route: 048
     Dates: end: 20180511
  7. ZEBINIX [Suspect]
     Active Substance: ESLICARBAZEPINE ACETATE
     Dosage: 0.5 DF, QD
     Route: 048
     Dates: start: 20180330, end: 20180430

REACTIONS (3)
  - Thrombocytopenia [Recovered/Resolved]
  - Off label use [Recovered/Resolved]
  - Thrombocytopenia [Recovered/Resolved]

NARRATIVE: CASE EVENT DATE: 20180330
